FAERS Safety Report 5663005-9 (Version None)
Quarter: 2008Q1

REPORT INFORMATION
  Report Type: 
  Country: None (occurrence: None)
  Receive Date: 20080307
  Receipt Date: 20080226
  Transmission Date: 20080703
  Serious: Yes (Hospitalization)
  Sender: FDA-Public Use
  Company Number: 2006BI010180

PATIENT
  Age: 47 Year
  Sex: Female
  Weight: 81.6475 kg

DRUGS (3)
  1. AVONEX [Suspect]
     Indication: MULTIPLE SCLEROSIS
     Dosage: 30 UG; QW; IM
     Route: 030
     Dates: start: 20000501, end: 20080105
  2. VITAMIN AND MINERAL PRENATAL SUPPLEMENT W/ FOLIC ACID CAP [Concomitant]
  3. PAXIL [Concomitant]

REACTIONS (8)
  - ARTHRALGIA [None]
  - DYSPEPSIA [None]
  - ECONOMIC PROBLEM [None]
  - INJECTION SITE RASH [None]
  - KNEE ARTHROPLASTY [None]
  - MUSCLE SPASMS [None]
  - NEURALGIA [None]
  - SEASONAL ALLERGY [None]
